FAERS Safety Report 10756570 (Version 2)
Quarter: 2015Q1

REPORT INFORMATION
  Report Type: Spontaneous
  Country: CH (occurrence: CH)
  Receive Date: 20150202
  Receipt Date: 20150304
  Transmission Date: 20150721
  Serious: Yes (Other)
  Sender: FDA-Public Use
  Company Number: CH-GILEAD-2015-0134082

PATIENT
  Age: 53 Year
  Sex: Male
  Weight: 70 kg

DRUGS (2)
  1. SOVALDI [Suspect]
     Active Substance: SOFOSBUVIR
     Indication: HEPATITIS C
     Dosage: UNK
     Route: 065
  2. DACLATASVIR [Concomitant]
     Active Substance: DACLATASVIR
     Indication: HEPATITIS C
     Dosage: UNK

REACTIONS (4)
  - Hepatic failure [Unknown]
  - Weight increased [Recovered/Resolved]
  - Ascites [Recovered/Resolved]
  - Oedema peripheral [Recovered/Resolved]
